FAERS Safety Report 8423433-5 (Version None)
Quarter: 2012Q2

REPORT INFORMATION
  Report Type: 
  Country: None (occurrence: None)
  Receive Date: 20120608
  Receipt Date: 20120531
  Transmission Date: 20120825
  Serious: Yes (Other)
  Sender: FDA-Public Use
  Company Number: DE-BAXTER-2012BAX007315

PATIENT
  Sex: Female

DRUGS (1)
  1. SUPRANE [Suspect]
     Indication: SURGERY
     Dates: start: 20120501

REACTIONS (2)
  - ELECTROCARDIOGRAM ST SEGMENT ABNORMAL [None]
  - BLOOD PRESSURE SYSTOLIC DECREASED [None]
